FAERS Safety Report 21262165 (Version 7)
Quarter: 2024Q2

REPORT INFORMATION
  Report Type: Report from Study
  Country: US (occurrence: US)
  Receive Date: 20220827
  Receipt Date: 20240422
  Transmission Date: 20240716
  Serious: Yes (Other)
  Sender: FDA-Public Use
  Company Number: US-ABBVIE-22K-163-4476675-00

PATIENT
  Sex: Male

DRUGS (6)
  1. HUMIRA [Suspect]
     Active Substance: ADALIMUMAB
     Indication: Crohn^s disease
     Dosage: CITRATE FREE,?FORM STRENGTH: 40 MILLIGRAM
     Route: 058
  2. HUMIRA [Suspect]
     Active Substance: ADALIMUMAB
     Dosage: CITRATE FREE,??FORM STRENGTH: 40 MILLIGRAM
     Route: 058
  3. HUMIRA [Suspect]
     Active Substance: ADALIMUMAB
     Dosage: CITRATE FREE,?FORM STRENGTH: 40 MILLIGRAM
     Route: 058
     Dates: start: 20220125
  4. HUMIRA [Suspect]
     Active Substance: ADALIMUMAB
     Dosage: CITRATE FREE,?FORM STRENGTH: 40 MILLIGRAM?DRUG END DATE IN JAN 2022
     Route: 058
     Dates: start: 20220120
  5. HUMIRA [Suspect]
     Active Substance: ADALIMUMAB
     Dosage: CITRATE FREE,?FORM STRENGTH: 40 MILLIGRAM
     Route: 058
     Dates: start: 20210125
  6. HUMIRA [Suspect]
     Active Substance: ADALIMUMAB
     Route: 058

REACTIONS (16)
  - Ligament rupture [Recovering/Resolving]
  - Memory impairment [Unknown]
  - Procedural pain [Not Recovered/Not Resolved]
  - Anxiety [Unknown]
  - Arthralgia [Recovering/Resolving]
  - Chest pain [Unknown]
  - Tendon rupture [Recovering/Resolving]
  - Pelvic pain [Not Recovered/Not Resolved]
  - Hiatus hernia [Recovering/Resolving]
  - Fall [Unknown]
  - Pain in extremity [Unknown]
  - Limb discomfort [Unknown]
  - Hip surgery [Not Recovered/Not Resolved]
  - Gait disturbance [Unknown]
  - Impaired healing [Unknown]
  - Impaired healing [Not Recovered/Not Resolved]

NARRATIVE: CASE EVENT DATE: 20220101
